FAERS Safety Report 17181331 (Version 1)
Quarter: 2019Q4

REPORT INFORMATION
  Report Type: Report from Study
  Country: ES (occurrence: ES)
  Receive Date: 20191220
  Receipt Date: 20191220
  Transmission Date: 20200122
  Serious: Yes (Other)
  Sender: FDA-Public Use
  Company Number: ES-ALK-ABELLO A/S-2019AA004292

PATIENT

DRUGS (6)
  1. PHARMALGEN 801 [Suspect]
     Active Substance: APIS MELLIFERA
     Indication: IMMUNE TOLERANCE INDUCTION
     Dosage: 100 MICROGRAM
  2. PHARMALGEN 801 [Suspect]
     Active Substance: APIS MELLIFERA
     Dosage: 100 MICROGRAM
  3. PREDNISOLONE. [Concomitant]
     Active Substance: PREDNISOLONE
     Indication: PREMEDICATION
     Dosage: 50 MILLIGRAM
     Route: 048
  4. CROMOGLICIC ACID [Concomitant]
     Active Substance: CROMOLYN
  5. OMALIZUMAB. [Concomitant]
     Active Substance: OMALIZUMAB
     Dosage: 300 MILLIGRAM EVERY 4 WEEKS
  6. LORATADINE. [Concomitant]
     Active Substance: LORATADINE
     Indication: PREMEDICATION
     Dosage: 10 MILLIGRAM

REACTIONS (4)
  - Chest discomfort [Unknown]
  - Dizziness [Unknown]
  - Drug-disease interaction [Not Recovered/Not Resolved]
  - Blood pressure decreased [Unknown]
